FAERS Safety Report 11832038 (Version 2)
Quarter: 2016Q1

REPORT INFORMATION
  Report Type: Spontaneous
  Country: US (occurrence: US)
  Receive Date: 20151214
  Receipt Date: 20160104
  Transmission Date: 20160525
  Serious: Yes (Hospitalization)
  Sender: FDA-Public Use
  Company Number: US-UNITED THERAPEUTICS-UNT-2015-015505

PATIENT
  Sex: Female

DRUGS (2)
  1. REMODULIN [Suspect]
     Active Substance: TREPROSTINIL
     Indication: PULMONARY ARTERIAL HYPERTENSION
     Dosage: 0.0825 ?G/KG, CONTINUING
     Route: 058
     Dates: start: 20140812
  2. REMODULIN [Suspect]
     Active Substance: TREPROSTINIL
     Dosage: 0.0825 ?G/KG, CONTINUING
     Route: 058
     Dates: start: 20150617

REACTIONS (3)
  - Abdominal pain upper [Unknown]
  - Intestinal obstruction [Unknown]
  - Nausea [Unknown]

NARRATIVE: CASE EVENT DATE: 20151126
